FAERS Safety Report 9902952 (Version 3)
Quarter: 2014Q1

REPORT INFORMATION
  Report Type: Report from Study
  Country: PT (occurrence: PT)
  Receive Date: 20140217
  Receipt Date: 20140314
  Transmission Date: 20141002
  Serious: Yes (Death, Hospitalization)
  Sender: FDA-Public Use
  Company Number: PHHY2014PT018192

PATIENT
  Age: 74 Year
  Sex: Male
  Weight: 70 kg

DRUGS (5)
  1. EXELON [Suspect]
  2. QUETIAPINE [Concomitant]
     Indication: SLEEP DISORDER
     Dosage: 50 MG, PER DAY
     Dates: start: 20101118
  3. QUETIAPINE [Concomitant]
     Indication: INSOMNIA
  4. EBIXA/AURA [Concomitant]
     Indication: DEMENTIA
     Dosage: 20 MG, UNK
     Dates: start: 20101108
  5. EBIXA/AURA [Concomitant]
     Dates: start: 20101118

REACTIONS (1)
  - Respiratory failure [Fatal]
